FAERS Safety Report 7459630-5 (Version None)
Quarter: 2011Q2

REPORT INFORMATION
  Report Type: 
  Country: None (occurrence: None)
  Receive Date: 20110505
  Receipt Date: 20110426
  Transmission Date: 20111010
  Serious: Yes (Other)
  Sender: FDA-Public Use
  Company Number: PHHY2011US37144

PATIENT
  Sex: Female
  Weight: 82.54 kg

DRUGS (3)
  1. PROZAC [Concomitant]
     Dosage: 10 MG, UNK
  2. PROVIGIL [Concomitant]
     Dosage: 100 MG, UNK
  3. GILENYA [Suspect]
     Dosage: 0.5 MG, QD
     Route: 048

REACTIONS (1)
  - CONSTIPATION [None]
